FAERS Safety Report 8346811-1 (Version None)
Quarter: 2012Q2

REPORT INFORMATION
  Report Type: 
  Country: None (occurrence: None)
  Receive Date: 20120509
  Receipt Date: 20120501
  Transmission Date: 20120825
  Serious: Yes (Hospitalization)
  Sender: FDA-Public Use
  Company Number: US-ASTRAZENECA-2011SE71014

PATIENT
  Age: 73 Year
  Sex: Female

DRUGS (3)
  1. NEXIUM [Suspect]
     Route: 048
  2. WELLBUTRIN [Concomitant]
  3. OMEPRAZOLE [Suspect]
     Route: 048

REACTIONS (8)
  - DYSPEPSIA [None]
  - DRUG INEFFECTIVE [None]
  - VOMITING [None]
  - DRUG DOSE OMISSION [None]
  - NASOPHARYNGITIS [None]
  - ABDOMINAL DISCOMFORT [None]
  - DIABETES MELLITUS [None]
  - GASTROOESOPHAGEAL REFLUX DISEASE [None]
